FAERS Safety Report 17336061 (Version 1)
Quarter: 2020Q1

REPORT INFORMATION
  Report Type: Spontaneous
  Country: US (occurrence: US)
  Receive Date: 20200129
  Receipt Date: 20200129
  Transmission Date: 20200409
  Serious: No
  Sender: FDA-Public Use
  Company Number: US-CIPLA LTD.-2019US08167

PATIENT

DRUGS (6)
  1. FUROSEMIDE. [Suspect]
     Active Substance: FUROSEMIDE
     Indication: OEDEMA
     Dosage: 20 MILLIGRAM, QD
     Route: 048
     Dates: start: 20190925
  2. GABAPENTIN. [Suspect]
     Active Substance: GABAPENTIN
     Indication: FIBROMYALGIA
     Dosage: 400 MILLIGRAM, PER DAY (300 MG AT NIGHT + 100 MG IN MORNING)
     Route: 048
  3. TOPIRAMATE. [Suspect]
     Active Substance: TOPIRAMATE
     Indication: FIBROMYALGIA
     Dosage: 100 MILLIGRAM, BID
     Route: 048
  4. DULOXETINE. [Suspect]
     Active Substance: DULOXETINE
     Indication: FIBROMYALGIA
     Dosage: 30 MILLIGRAM, 1 IN MORNING + 2 AT NIGHT
     Route: 048
  5. EDRONAX [Suspect]
     Active Substance: REBOXETINE MESYLATE
     Indication: FIBROMYALGIA
     Dosage: 4 MILLIGRAM, BID, ONCE IN MORNING + ONCE IN LATE AFTERNOON
     Route: 048
  6. REBOXETINE [Suspect]
     Active Substance: REBOXETINE
     Indication: FIBROMYALGIA
     Dosage: 4 MILLIGRAM, BID, ONCE IN MORNING + ONCE IN LATE AFTERNOON
     Route: 048

REACTIONS (4)
  - Weight increased [Not Recovered/Not Resolved]
  - Off label use [Unknown]
  - Product use in unapproved indication [Unknown]
  - Condition aggravated [Not Recovered/Not Resolved]
